FAERS Safety Report 5872669-6 (Version None)
Quarter: 2008Q3

REPORT INFORMATION
  Report Type: 
  Country: None (occurrence: None)
  Receive Date: 20080905
  Receipt Date: 20080827
  Transmission Date: 20090109
  Serious: Yes (Hospitalization)
  Sender: FDA-Public Use
  Company Number: JP-ABBOTT-08P-087-0471782-00

PATIENT
  Age: 46 Year
  Sex: Female

DRUGS (3)
  1. CLARITH TABLETS [Suspect]
     Indication: HELICOBACTER INFECTION
     Route: 048
     Dates: start: 20050922, end: 20050928
  2. LANSOPRAZOLE [Suspect]
     Indication: HELICOBACTER INFECTION
     Route: 048
     Dates: start: 20050922, end: 20050928
  3. AMOXICILLIN TRIHYDRATE [Suspect]
     Indication: HELICOBACTER INFECTION
     Route: 048
     Dates: start: 20050922, end: 20050928

REACTIONS (1)
  - ERYTHEMA [None]
